FAERS Safety Report 19560309 (Version 6)
Quarter: 2021Q4

REPORT INFORMATION
  Report Type: Report from Study
  Country: US (occurrence: None)
  Receive Date: 20210716
  Receipt Date: 20211129
  Transmission Date: 20220303
  Serious: Yes (Hospitalization)
  Sender: FDA-Public Use
  Company Number: US-ROCHE-2869500

PATIENT
  Age: 78 Year
  Sex: Female
  Weight: 61.1 kg

DRUGS (9)
  1. GLOFITAMAB [Suspect]
     Active Substance: GLOFITAMAB
     Indication: Non-Hodgkin^s lymphoma
     Dosage: DOSE LAST STUDY DRUG ADMIN PRIOR SAE 2.5 MG (DAY 1 AND DAY 8 OF CYCLE 1)?ON 08/JUL/2021 AT 4:20PM, R
     Route: 042
     Dates: start: 20210708
  2. OBINUTUZUMAB [Suspect]
     Active Substance: OBINUTUZUMAB
     Indication: Non-Hodgkin^s lymphoma
     Dosage: ON 28/JUN/2021 (1000 MG) FROM 12:55 PM TO 5:50 PM, RECEIVED MOST RECENT DOSE OF OBINUTUZUMAB PRIOR T
     Route: 042
     Dates: start: 20210628
  3. ACETAMINOPHEN [Concomitant]
     Active Substance: ACETAMINOPHEN
     Dates: start: 20210628, end: 20210628
  4. ACETAMINOPHEN [Concomitant]
     Active Substance: ACETAMINOPHEN
     Dates: start: 20210708, end: 20210708
  5. DIPHENHYDRAMINE [Concomitant]
     Active Substance: DIPHENHYDRAMINE
     Dates: start: 20210628, end: 20210628
  6. DIPHENHYDRAMINE [Concomitant]
     Active Substance: DIPHENHYDRAMINE
     Dates: start: 20210708, end: 20210708
  7. METHYLPREDNISOLONE [Concomitant]
     Active Substance: METHYLPREDNISOLONE
     Dates: start: 20210628, end: 20210628
  8. OXYGEN [Concomitant]
     Active Substance: OXYGEN
     Indication: Hypoxia
  9. DEXAMETHASONE [Concomitant]
     Active Substance: DEXAMETHASONE
     Dates: start: 20210708, end: 20210708

REACTIONS (1)
  - Cytokine release syndrome [Recovered/Resolved]

NARRATIVE: CASE EVENT DATE: 20210709
